FAERS Safety Report 16642284 (Version 1)
Quarter: 2019Q3

REPORT INFORMATION
  Report Type: Report from Study
  Country: US (occurrence: US)
  Receive Date: 20190729
  Receipt Date: 20190729
  Transmission Date: 20191004
  Serious: Yes (Other)
  Sender: FDA-Public Use
  Company Number: US-JNJFOC-20190445316

PATIENT
  Age: 78 Year
  Sex: Male

DRUGS (19)
  1. FISH OIL [Concomitant]
     Active Substance: FISH OIL
  2. MAGNESIUM [Concomitant]
     Active Substance: MAGNESIUM
  3. VITAMIN D3 [Concomitant]
     Active Substance: CHOLECALCIFEROL
  4. GELATIN [Concomitant]
     Active Substance: GELATIN
  5. VITIS VINIFERA (GRAPE) FLOWER EXTRACT [Concomitant]
     Active Substance: VITIS VINIFERA FLOWERING TOP
  6. CYANOCOBALAMIN. [Concomitant]
     Active Substance: CYANOCOBALAMIN
  7. ECHINACEA [Concomitant]
     Active Substance: ECHINACEA, UNSPECIFIED
  8. LINUM USITATISSIMUM SEED [Concomitant]
  9. MULTIVITAMINS [Concomitant]
     Active Substance: VITAMINS
  10. ALLOPURINOL. [Concomitant]
     Active Substance: ALLOPURINOL
  11. POTASSIUM CHLORIDE. [Concomitant]
     Active Substance: POTASSIUM CHLORIDE
  12. MOBIC [Concomitant]
     Active Substance: MELOXICAM
  13. SPIRIVA [Concomitant]
     Active Substance: TIOTROPIUM BROMIDE MONOHYDRATE
  14. GABAPENTIN. [Concomitant]
     Active Substance: GABAPENTIN
  15. PROAIR HFA [Concomitant]
     Active Substance: ALBUTEROL SULFATE
  16. IMBRUVICA [Suspect]
     Active Substance: IBRUTINIB
     Indication: CHRONIC LYMPHOCYTIC LEUKAEMIA
     Route: 048
     Dates: start: 20180510
  17. ASCORBIC ACID. [Concomitant]
     Active Substance: ASCORBIC ACID
  18. FLUTICASONE PROPIONATE W/SALMETEROL XINAFOATE [Concomitant]
     Active Substance: FLUTICASONE PROPIONATE\SALMETEROL XINAFOATE
  19. GLUCOSAMINE [Concomitant]
     Active Substance: GLUCOSAMINE

REACTIONS (7)
  - Feeling abnormal [Unknown]
  - Asthenia [Unknown]
  - Contusion [Unknown]
  - Cataract [Unknown]
  - Hypersomnia [Unknown]
  - Cerebral disorder [Unknown]
  - Ocular hyperaemia [Unknown]

NARRATIVE: CASE EVENT DATE: 201903
